FAERS Safety Report 10040008 (Version 1)
Quarter: 2014Q1

REPORT INFORMATION
  Report Type: Spontaneous
  Country: US (occurrence: US)
  Receive Date: 20140326
  Receipt Date: 20140326
  Transmission Date: 20141002
  Serious: No
  Sender: FDA-Public Use
  Company Number: US-GILEAD-2014-0097600

PATIENT
  Sex: Female

DRUGS (3)
  1. SOVALDI [Suspect]
     Indication: PRODUCT USED FOR UNKNOWN INDICATION
     Dosage: 1 DF, QD
     Route: 065
     Dates: start: 20140319, end: 20140319
  2. SOVALDI [Suspect]
     Dosage: 1 DF, QD
     Route: 065
     Dates: start: 20140320, end: 20140320
  3. RIBAVIRIN [Concomitant]

REACTIONS (3)
  - Insomnia [Unknown]
  - Fatigue [Unknown]
  - Overdose [Unknown]
